FAERS Safety Report 9325851 (Version 1)
Quarter: 2013Q2

REPORT INFORMATION
  Report Type: Spontaneous
  Country: US (occurrence: None)
  Receive Date: 20130603
  Receipt Date: 20130603
  Transmission Date: 20140414
  Serious: Yes (Other)
  Sender: FDA-Public Use
  Company Number: None

PATIENT
  Age: 62 Year
  Sex: Female
  Weight: 66.23 kg

DRUGS (1)
  1. HUMIRA [Suspect]
     Indication: RHEUMATOID ARTHRITIS
     Dosage: EVERY 2 WEEKS
     Route: 058
     Dates: start: 20080101, end: 20130531

REACTIONS (7)
  - Injection site pain [None]
  - Injection site pain [None]
  - Injection site urticaria [None]
  - Injection site erythema [None]
  - Diarrhoea [None]
  - Abdominal pain upper [None]
  - Product quality issue [None]
